FAERS Safety Report 5103924-5 (Version None)
Quarter: 2006Q3

REPORT INFORMATION
  Report Type: 
  Country: None (occurrence: None)
  Receive Date: 20060913
  Receipt Date: 20060905
  Transmission Date: 20061208
  Serious: Yes (Death)
  Sender: FDA-Public Use
  Company Number: US-JNJFOC-20060901986

PATIENT
  Sex: Female

DRUGS (4)
  1. FENTANYL [Suspect]
     Indication: UNEVALUABLE EVENT
     Route: 065
  2. BUPROPION HCL [Suspect]
     Indication: UNEVALUABLE EVENT
     Route: 065
  3. ACETAMINOPHEN AND HYDROCODONE BITARTRATE [Suspect]
     Indication: UNEVALUABLE EVENT
     Route: 065
  4. CYCLOBENZAPRINE HCL [Suspect]
     Indication: UNEVALUABLE EVENT
     Route: 065

REACTIONS (2)
  - INTENTIONAL DRUG MISUSE [None]
  - OVERDOSE [None]
